FAERS Safety Report 4880813-2 (Version None)
Quarter: 2006Q1

REPORT INFORMATION
  Report Type: 
  Country: None (occurrence: None)
  Receive Date: 20060110
  Receipt Date: 20050412
  Transmission Date: 20060701
  Serious: Yes (Other)
  Sender: FDA-Public Use
  Company Number: HQWYE017314APR05

PATIENT
  Sex: Male

DRUGS (6)
  1. MYAMBUTOL [Suspect]
     Indication: DISSEMINATED TUBERCULOSIS
     Dosage: 15MG/KG//DAILY/064
  2. ISONIAZID [Suspect]
     Indication: DISSEMINATED TUBERCULOSIS
     Dosage: 300MG/KG DAILY/064
  3. RIFAMPICIN [Suspect]
     Indication: DISSEMINATED TUBERCULOSIS
     Dosage: 600 MG/DAY/064
  4. PYRAZINAMIDE [Suspect]
     Indication: DISSEMINATED TUBERCULOSIS
     Dosage: 15 MG/KG/DAY/064 THEN 1.5MG/DAY
  5. PREDNISOLONE [Concomitant]
  6. PYRIDOXINE HCL [Concomitant]

REACTIONS (1)
  - BLINDNESS [None]
